FAERS Safety Report 8775147 (Version 2)
Quarter: 2012Q4

REPORT INFORMATION
  Report Type: 
  Country: DE (occurrence: DE)
  Receive Date: 20120910
  Receipt Date: 20120928
  Transmission Date: 20130627
  Serious: Yes (Other)
  Sender: FDA-Public Use
  Company Number: DE-BAYER-2012-093108

PATIENT
  Age: 81 Year
  Sex: Female

DRUGS (11)
  1. TELMISARTAN [BOEHRINGER INGELHEIM] [Suspect]
     Dosage: UNK mg, UNK
     Route: 048
     Dates: start: 20120830
  2. CYMBALTA [Suspect]
     Dosage: UNK
     Route: 048
     Dates: start: 20120830
  3. LEVOMEPROMAZINE [Suspect]
     Dosage: 25 mg x 3
     Route: 048
     Dates: start: 20120830
  4. METHIONINE [Suspect]
     Dosage: 500 mg, UNK
     Route: 048
     Dates: start: 20120830
  5. PANTOZOL [Suspect]
     Dosage: 40 mg, UNK
     Route: 048
     Dates: start: 20120830
  6. ACETYLSALICYLIC ACID({=100 MG) [Suspect]
     Dosage: 100 mg, UNK
     Route: 048
     Dates: start: 20120830
  7. FERRO SANOL [Suspect]
     Dosage: UNK
     Dates: start: 20120830
  8. OMEPRAZOLE [Suspect]
     Dosage: UNK
     Route: 048
     Dates: start: 20120830
  9. L-THYROXIN [Suspect]
     Dosage: 1 DF, UNK
     Route: 048
     Dates: start: 20120830
  10. HYDROCHLOROTHIAZIDE W/RAMIPRIL [Suspect]
     Dosage: 1 DF, UNK
     Route: 048
     Dates: start: 20120830
  11. LORAZEPAM [Suspect]
     Dosage: 1/2 of 1 mg dose
     Route: 048
     Dates: start: 20120830

REACTIONS (10)
  - Medication error [Recovered/Resolved]
  - Systolic hypertension [Recovered/Resolved]
  - Poor quality sleep [Recovered/Resolved]
  - Speech disorder [Recovered/Resolved]
  - Slow response to stimuli [Recovered/Resolved]
  - Dizziness [Recovered/Resolved]
  - General physical condition abnormal [Recovered/Resolved]
  - Accidental exposure to product [None]
  - Self-medication [None]
  - Hypotension [None]
